FAERS Safety Report 12330606 (Version 1)
Quarter: 2016Q2

REPORT INFORMATION
  Report Type: Spontaneous
  Country: US (occurrence: None)
  Receive Date: 20160503
  Receipt Date: 20160503
  Transmission Date: 20160815
  Serious: Yes (Death)
  Sender: FDA-Public Use
  Company Number: None

PATIENT
  Age: 94 Year
  Sex: Male

DRUGS (2)
  1. PARICALCITOL. [Suspect]
     Active Substance: PARICALCITOL
     Route: 048
     Dates: start: 2011
  2. ARANESP [Suspect]
     Active Substance: DARBEPOETIN ALFA
     Indication: CHRONIC KIDNEY DISEASE
     Route: 058
     Dates: start: 2014

REACTIONS (1)
  - Death [None]

NARRATIVE: CASE EVENT DATE: 20160502
